FAERS Safety Report 8228402 (Version 4)
Quarter: 2013Q1

REPORT INFORMATION
  Report Type: Spontaneous
  Country: US (occurrence: US)
  Receive Date: 20111104
  Receipt Date: 20130228
  Transmission Date: 20140127
  Serious: Yes (Other)
  Sender: FDA-Public Use
  Company Number: US-ASTRAZENECA-2011SE64728

PATIENT
  Age: 61 Year
  Sex: Male

DRUGS (6)
  1. NEXIUM [Suspect]
     Route: 048
  2. NEXIUM [Suspect]
     Dosage: TWO TIMES A DAY
     Route: 048
  3. NEXIUM [Suspect]
     Route: 048
  4. PRILOSEC [Suspect]
     Route: 048
  5. PRILOSEC OTC [Suspect]
     Route: 048
  6. ZANTAC [Concomitant]

REACTIONS (10)
  - Cerebrovascular accident [Unknown]
  - Renal cancer [Unknown]
  - Throat cancer [Unknown]
  - Myocardial infarction [Unknown]
  - Oesophageal ulcer [Unknown]
  - Gastric ulcer [Unknown]
  - Carotid artery occlusion [Unknown]
  - Hiatus hernia [Unknown]
  - Malaise [Unknown]
  - Drug ineffective [Unknown]
